FAERS Safety Report 4437103-1 (Version None)
Quarter: 2004Q3

REPORT INFORMATION
  Report Type: 
  Country: None (occurrence: None)
  Receive Date: 20040830
  Receipt Date: 20040824
  Transmission Date: 20050211
  Serious: Yes (Other)
  Sender: FDA-Public Use
  Company Number: PHEH2004US09222

PATIENT
  Age: 72 Year
  Sex: Female

DRUGS (6)
  1. MIACALCIN [Suspect]
     Indication: OSTEOPOROSIS
     Dosage: 200 IU QD
     Route: 045
     Dates: start: 20000101
  2. VIOXX [Concomitant]
  3. DIGITALIS [Concomitant]
  4. ZOCOR [Concomitant]
  5. CALCIUM                                 /N/A/ [Concomitant]
  6. VITAMIN D [Concomitant]

REACTIONS (3)
  - DRUG INEFFECTIVE [None]
  - INTERVERTEBRAL DISC COMPRESSION [None]
  - SPINAL FRACTURE [None]
